FAERS Safety Report 6686768-2 (Version None)
Quarter: 2010Q2

REPORT INFORMATION
  Report Type: 
  Country: None (occurrence: None)
  Receive Date: 20100419
  Receipt Date: 20100413
  Transmission Date: 20101027
  Serious: Yes (Life-Threatening, Hospitalization, Disabling, Other)
  Sender: FDA-Public Use
  Company Number: BR-BAYER-201013493LA

PATIENT
  Age: 63 Year
  Sex: Male
  Weight: 64 kg

DRUGS (4)
  1. SORAFENIB [Suspect]
     Indication: HEPATIC NEOPLASM MALIGNANT
     Dosage: STUDY PERIOD: C1DAY1
     Route: 048
     Dates: start: 20100331, end: 20100411
  2. ERLOTINIB OR PLACEBO [Suspect]
     Indication: HEPATIC NEOPLASM MALIGNANT
     Dosage: STUDY PERIOD: C1DAY1
     Route: 048
     Dates: start: 20100331, end: 20100411
  3. PROPRANOLOL [Concomitant]
     Indication: HYPERTENSION
     Route: 048
     Dates: start: 20061001, end: 20100411
  4. DOMPERIDONE [Concomitant]
     Indication: ABDOMINAL DISTENSION
     Route: 048
     Dates: start: 20081218, end: 20100411

REACTIONS (2)
  - DIARRHOEA [None]
  - HEPATIC FUNCTION ABNORMAL [None]
